FAERS Safety Report 6142673-1 (Version None)
Quarter: 2009Q2

REPORT INFORMATION
  Report Type: 
  Country: None (occurrence: None)
  Receive Date: 20090403
  Receipt Date: 20090327
  Transmission Date: 20091009
  Serious: Yes (Hospitalization)
  Sender: FDA-Public Use
  Company Number: FR-ASTRAZENECA-2009CG00613

PATIENT
  Age: 48 Year
  Sex: Male

DRUGS (3)
  1. NEXIUM [Suspect]
     Indication: PROPHYLAXIS AGAINST GASTROINTESTINAL ULCER
     Route: 048
     Dates: start: 20090316, end: 20090301
  2. NEXIUM [Suspect]
     Route: 048
     Dates: start: 20090301
  3. BI-PROFENID [Suspect]
     Indication: RENAL COLIC
     Dates: start: 20090308, end: 20090319

REACTIONS (5)
  - ABDOMINAL PAIN UPPER [None]
  - DIZZINESS [None]
  - MALAISE [None]
  - MELAENA [None]
  - RECTAL HAEMORRHAGE [None]
